FAERS Safety Report 25729284 (Version 1)
Quarter: 2025Q3

REPORT INFORMATION
  Report Type: Spontaneous
  Country: EU (occurrence: EU)
  Receive Date: 20250827
  Receipt Date: 20250827
  Transmission Date: 20251020
  Serious: Yes (Other)
  Sender: HIKMA
  Company Number: None

PATIENT
  Age: 66 Year
  Sex: Male

DRUGS (4)
  1. CEFTRIAXONE [Suspect]
     Active Substance: CEFTRIAXONE
     Indication: Antibiotic prophylaxis
     Dosage: 1 GRAM, QD
     Route: 042
     Dates: start: 20250319, end: 20250325
  2. FENTANYL [Suspect]
     Active Substance: FENTANYL
     Indication: Sedation
     Dosage: 600 MILLIGRAM, QD
     Route: 042
     Dates: start: 20250319, end: 20250411
  3. LEVETIRACETAM [Suspect]
     Active Substance: LEVETIRACETAM
     Indication: Hypoxic-ischaemic encephalopathy
     Dosage: 500 MILLIGRAM, Q12H
     Route: 042
     Dates: start: 20250319, end: 20250330
  4. MEROPENEM [Suspect]
     Active Substance: MEROPENEM
     Indication: Antibiotic prophylaxis
     Dosage: 2 GRAM, Q8H
     Route: 042
     Dates: start: 20250328, end: 20250330

REACTIONS (1)
  - Toxic skin eruption [Unknown]

NARRATIVE: CASE EVENT DATE: 20250329
